FAERS Safety Report 7343380-X (Version None)
Quarter: 2011Q1

REPORT INFORMATION
  Report Type: 
  Country: None (occurrence: None)
  Receive Date: 20110310
  Receipt Date: 20110228
  Transmission Date: 20110831
  Serious: Yes (Hospitalization, Other)
  Sender: FDA-Public Use
  Company Number: PHHY2011CN17386

PATIENT
  Age: 18 Year
  Sex: Female

DRUGS (14)
  1. CICLOSPORIN [Suspect]
     Indication: GRAFT VERSUS HOST DISEASE
     Dosage: 100 MG, ONCE EVERY TWELVE HOURS
     Route: 048
  2. METHYLPREDNISOLONE [Concomitant]
     Indication: GRAFT VERSUS HOST DISEASE
     Dosage: 8 MG,
  3. TAZOBACTAM [Concomitant]
  4. CEFACLOR [Concomitant]
  5. CLOPIDOGREL [Concomitant]
  6. CICLOSPORIN [Suspect]
     Dosage: 75 MG, ONCE EVERY 12 HOURS
  7. MYCOPHENOLATE MOFETIL [Concomitant]
     Indication: GRAFT VERSUS HOST DISEASE
     Dosage: 8 MG, ONCE EVERY 12 HOURS
  8. ROTUNDINE [Concomitant]
  9. CITICOLINE [Concomitant]
  10. CARBAMAZEPINE [Concomitant]
  11. VORICONAZOLE [Interacting]
  12. DIAZEPAM [Concomitant]
  13. CEFOPERAZONE SODIUM [Concomitant]
  14. ALPROSTADIL [Concomitant]

REACTIONS (14)
  - CSF TEST ABNORMAL [None]
  - PRODUCTIVE COUGH [None]
  - IMMUNOSUPPRESSANT DRUG LEVEL INCREASED [None]
  - CEREBRAL INFARCTION [None]
  - DIZZINESS [None]
  - OCCULT BLOOD [None]
  - EPILEPSY [None]
  - TRISMUS [None]
  - LUNG INFECTION [None]
  - DRUG INTERACTION [None]
  - VISION BLURRED [None]
  - HEADACHE [None]
  - CONVULSION [None]
  - FUNGAL INFECTION [None]
